FAERS Safety Report 19632921 (Version 1)
Quarter: 2021Q3

REPORT INFORMATION
  Report Type: Spontaneous
  Country: CN (occurrence: CN)
  Receive Date: 20210730
  Receipt Date: 20210730
  Transmission Date: 20211014
  Serious: Yes (Death)
  Sender: FDA-Public Use
  Company Number: CN-ORION CORPORATION ORION PHARMA-ENTC2021-0186

PATIENT
  Age: 70 Year
  Sex: Male

DRUGS (5)
  1. STALEVO [Suspect]
     Active Substance: CARBIDOPA\ENTACAPONE\LEVODOPA
     Indication: PARKINSON^S DISEASE
     Dosage: 1 TABLET, ONCE A DAY BEFORE SLEEP
     Route: 048
     Dates: start: 20210625, end: 20210626
  2. LEVODOPA AND BENSERAZIDE HYDROCHLORIDE [Concomitant]
     Active Substance: BENSERAZIDE HYDROCHLORIDE\LEVODOPA
     Indication: PARKINSON^S DISEASE
     Route: 048
     Dates: end: 20210626
  3. PIRIBEDIL [Concomitant]
     Active Substance: PIRIBEDIL
     Indication: PARKINSON^S DISEASE
     Route: 048
     Dates: end: 20210626
  4. CEFOPERAZONE SODIUM;SULBACTAM SODIUM [Concomitant]
     Active Substance: CEFOPERAZONE SODIUM\SULBACTAM SODIUM
     Indication: PARKINSON^S DISEASE
     Route: 042
     Dates: end: 20210626
  5. OLANZAPINE. [Concomitant]
     Active Substance: OLANZAPINE
     Indication: PARKINSON^S DISEASE
     Route: 048
     Dates: end: 20210626

REACTIONS (2)
  - Respiratory failure [None]
  - Dyspnoea [Not Recovered/Not Resolved]

NARRATIVE: CASE EVENT DATE: 20210625
